FAERS Safety Report 4700028-8 (Version None)
Quarter: 2005Q2

REPORT INFORMATION
  Report Type: 
  Country: None (occurrence: None)
  Receive Date: 20050623
  Receipt Date: 20050609
  Transmission Date: 20051028
  Serious: Yes (Hospitalization)
  Sender: FDA-Public Use
  Company Number: 200414021BCC

PATIENT
  Sex: Male

DRUGS (10)
  1. ALEVE [Suspect]
     Indication: DEMENTIA ALZHEIMER'S TYPE
     Dosage: BID, ORAL
     Route: 048
     Dates: start: 20010301, end: 20040802
  2. TYLENOL PM [Concomitant]
     Indication: PROPHYLAXIS
  3. ASPIRIN [Concomitant]
  4. ATENOLOL [Concomitant]
  5. MULTI-VITAMIN [Concomitant]
  6. VITAMIN B COMPLEX CAP [Concomitant]
  7. VITAMIN E [Concomitant]
  8. ZINC [Concomitant]
  9. CALCIUM GLUCONATE [Concomitant]
  10. SELENIUM SULFIDE [Concomitant]

REACTIONS (2)
  - CORONARY ARTERY OCCLUSION [None]
  - CORONARY ARTERY STENOSIS [None]
